FAERS Safety Report 8319415-4 (Version None)
Quarter: 2012Q2

REPORT INFORMATION
  Report Type: 
  Country: None (occurrence: None)
  Receive Date: 20120427
  Receipt Date: 20120423
  Transmission Date: 20120825
  Serious: Yes (Death)
  Sender: FDA-Public Use
  Company Number: PHHY2012US035673

PATIENT
  Age: 77 Year
  Sex: Male

DRUGS (4)
  1. OXYCODONE HYDROCHLORIDE [Suspect]
  2. POTASSIUM CHLORIDE [Suspect]
  3. CARBAMAZEPINE [Suspect]
  4. ACETAMINOPHEN AND CODEINE PHOSPHATE [Suspect]
     Indication: ANALGESIC THERAPY

REACTIONS (1)
  - COMPLETED SUICIDE [None]
